FAERS Safety Report 24839399 (Version 1)
Quarter: 2025Q1

REPORT INFORMATION
  Report Type: Spontaneous
  Country: LB (occurrence: LB)
  Receive Date: 20250114
  Receipt Date: 20250114
  Transmission Date: 20250409
  Serious: No
  Sender: ALKEM
  Company Number: LB-ALKEM LABORATORIES LIMITED-LB-ALKEM-2024-12748

PATIENT
  Age: 57 Year
  Sex: Female

DRUGS (1)
  1. CAPECITABINE [Suspect]
     Active Substance: CAPECITABINE
     Indication: Breast cancer metastatic
     Dosage: 1250 MILLIGRAM/SQ. METER, BID (Q21D)
     Route: 065

REACTIONS (1)
  - Hypertriglyceridaemia [Recovering/Resolving]
